FAERS Safety Report 7762925 (Version 3)
Quarter: 2012Q4

REPORT INFORMATION
  Report Type: 
  Country: US (occurrence: US)
  Receive Date: 20110117
  Receipt Date: 20121002
  Transmission Date: 20130627
  Serious: Yes (Hospitalization)
  Sender: FDA-Public Use
  Company Number: US-BAYER-201039189NA

PATIENT
  Age: 20 Year
  Sex: Female
  Weight: 70.46 kg

DRUGS (13)
  1. YASMIN [Suspect]
     Indication: ACNE
     Route: 048
     Dates: start: 2004, end: 200802
  2. YASMIN [Suspect]
     Indication: MENSTRUATION IRREGULAR
  3. YASMIN [Suspect]
     Indication: CONTRACEPTION
  4. SYNTHROID [Concomitant]
     Indication: THYROID DISORDER
  5. LEVOXYL [Concomitant]
     Indication: THYROID DISORDER
  6. VIRAL VACCINES [Concomitant]
     Indication: HUMAN PAPILLOMA VIRUS IMMUNISATION
     Dates: start: 20080109
  7. VIRAL VACCINES [Concomitant]
     Indication: HUMAN PAPILLOMA VIRUS IMMUNISATION
     Dates: start: 20071107
  8. PHENERGAN [Concomitant]
     Indication: VOMITING
     Dates: start: 20080201, end: 20080201
  9. PHENERGAN [Concomitant]
     Indication: VOMITING
     Route: 030
     Dates: start: 20080202
  10. VITAMIN B12 [Concomitant]
     Indication: VITAMIN B12 DEFICIENCY
  11. MINOCIN [Concomitant]
  12. TOPROL [Concomitant]
  13. VIRAL VACCINES [Concomitant]

REACTIONS (7)
  - Wallenberg syndrome [None]
  - Headache [None]
  - Vertigo [None]
  - Dizziness [None]
  - Hemiplegia [None]
  - Diplopia [None]
  - Hypoaesthesia [None]
